FAERS Safety Report 7367620-6 (Version None)
Quarter: 2011Q1

REPORT INFORMATION
  Report Type: 
  Country: None (occurrence: None)
  Receive Date: 20110322
  Receipt Date: 20110314
  Transmission Date: 20110831
  Serious: Yes (Other)
  Sender: FDA-Public Use
  Company Number: FR-PFIZER INC-2011056487

PATIENT
  Age: 77 Year
  Sex: Female

DRUGS (2)
  1. VANCOMYCIN HCL [Suspect]
  2. STRONTIUM RANELATE [Concomitant]

REACTIONS (1)
  - LINEAR IGA DISEASE [None]
